FAERS Safety Report 14302614 (Version 12)
Quarter: 2019Q4

REPORT INFORMATION
  Report Type: Spontaneous
  Country: FR (occurrence: FR)
  Receive Date: 20171219
  Receipt Date: 20191203
  Transmission Date: 20200122
  Serious: Yes (Hospitalization, Congenital Anomaly, Other)
  Sender: FDA-Public Use
  Company Number: FR-AUROBINDO-AUR-APL-2017-45884

PATIENT
  Sex: Female
  Weight: 2.2 kg

DRUGS (11)
  1. REYATAZ [Suspect]
     Active Substance: ATAZANAVIR SULFATE
     Indication: HIV INFECTION
     Dosage: UNK
     Route: 064
     Dates: start: 201605, end: 20170129
  2. REYATAZ [Suspect]
     Active Substance: ATAZANAVIR SULFATE
     Indication: HIV INFECTION
     Dosage: UNK, 1 {TRIMESTER}
     Route: 064
     Dates: start: 20160501, end: 20170129
  3. NORVIR [Suspect]
     Active Substance: RITONAVIR
     Indication: HIV INFECTION
     Dosage: 1 DOSAGE FORM, ONCE A DAY, 1 {TRIMESTER}
     Route: 064
     Dates: start: 20160501, end: 20170129
  4. KIVEXA [Suspect]
     Active Substance: ABACAVIR SULFATE\LAMIVUDINE
     Dosage: UNK
     Route: 064
  5. NEVIRAPINE. [Suspect]
     Active Substance: NEVIRAPINE
     Indication: PROPHYLAXIS AGAINST HIV INFECTION
  6. KIVEXA [Suspect]
     Active Substance: ABACAVIR SULFATE\LAMIVUDINE
     Indication: HIV INFECTION
     Dosage: UNK, 1 {TRIMESTER}
     Route: 064
     Dates: start: 20160501, end: 20170129
  7. EPZICOM [Suspect]
     Active Substance: ABACAVIR SULFATE\LAMIVUDINE
     Indication: HIV INFECTION
     Dosage: UNK, 1 {TRIMESTER}
     Route: 064
     Dates: start: 20160501, end: 20170129
  8. NORVIR [Suspect]
     Active Substance: RITONAVIR
     Dosage: UNK
     Route: 064
     Dates: start: 20160501, end: 20170129
  9. NEVIRAPINE. [Suspect]
     Active Substance: NEVIRAPINE
     Indication: PROPHYLAXIS
     Dosage: UNK, 3 {TRIMESTER}
     Route: 064
     Dates: start: 20170129, end: 20170212
  10. PREZISTA [Suspect]
     Active Substance: DARUNAVIR ETHANOLATE
     Indication: HIV INFECTION
     Dosage: UNK
     Route: 064
     Dates: start: 20160501, end: 20170129
  11. VIRAMUNE [Suspect]
     Active Substance: NEVIRAPINE
     Indication: PROPHYLAXIS AGAINST HIV INFECTION
     Dosage: UNK
     Route: 064
     Dates: start: 20170129, end: 20170212

REACTIONS (12)
  - Foetal growth restriction [Recovering/Resolving]
  - Low set ears [Unknown]
  - Dermatitis exfoliative generalised [Not Recovered/Not Resolved]
  - Breast disorder [Unknown]
  - Eosinophilia [Unknown]
  - Supernumerary nipple [Unknown]
  - Congenital naevus [Unknown]
  - Foetal exposure during pregnancy [Recovered/Resolved]
  - Acoustic stimulation tests abnormal [Unknown]
  - Cerebral ventricle dilatation [Unknown]
  - Dilatation ventricular [Unknown]
  - Left ventricular dilatation [Unknown]

NARRATIVE: CASE EVENT DATE: 20170129
